FAERS Safety Report 6415247-2 (Version None)
Quarter: 2009Q4

REPORT INFORMATION
  Report Type: 
  Country: None (occurrence: None)
  Receive Date: 20091027
  Receipt Date: 20091015
  Transmission Date: 20100525
  Serious: Yes (Other)
  Sender: FDA-Public Use
  Company Number: IT-RANBAXY-2009RR-28160

PATIENT
  Age: 71 Year
  Sex: Female

DRUGS (9)
  1. SERTRALINE HCL [Suspect]
     Indication: DEPRESSION
     Dosage: 50 MG, UNK
  2. SERTRALINE HCL [Suspect]
     Dosage: 50 MG, UNK
     Dates: start: 20080123
  3. AMISULPRIDE [Concomitant]
     Dosage: 50 MG, QD
  4. DIAZEPAM [Concomitant]
     Dosage: 2 MG, QD
  5. NICERGOLINE [Concomitant]
     Dosage: 30 MG, QD
  6. AMLODIPINE [Concomitant]
     Dosage: 5 MG, QD
  7. ASPIRIN [Concomitant]
     Dosage: 100 MG, QD
  8. CANDESARTAN CILEXETIL [Concomitant]
     Dosage: 16 MG, QD
  9. ATENOLOL [Concomitant]
     Dosage: 25 MG, QD

REACTIONS (1)
  - RHABDOMYOLYSIS [None]
